FAERS Safety Report 5976053-6 (Version None)
Quarter: 2008Q4

REPORT INFORMATION
  Report Type: 
  Country: None (occurrence: None)
  Receive Date: 20081202
  Receipt Date: 20081120
  Transmission Date: 20090506
  Serious: Yes (Other)
  Sender: FDA-Public Use
  Company Number: US-ROCHE-598576

PATIENT
  Age: 54 Year
  Sex: Female

DRUGS (4)
  1. BONIVA [Suspect]
     Indication: OSTEOPOROSIS
     Route: 065
     Dates: start: 20081001
  2. COUMADIN [Concomitant]
  3. CALCIUM [Concomitant]
     Dosage: DRUG NAME: CALCIUM WITH D
  4. MULTI-VITAMIN [Concomitant]

REACTIONS (2)
  - THROMBOSIS [None]
  - UPPER LIMB FRACTURE [None]
